FAERS Safety Report 16187274 (Version 1)
Quarter: 2019Q2

REPORT INFORMATION
  Report Type: Report from Study
  Country: None (occurrence: NZ)
  Receive Date: 20190411
  Receipt Date: 20190411
  Transmission Date: 20190711
  Serious: Yes (Hospitalization)
  Sender: FDA-Public Use
  Company Number: NZ-ABBVIE-19K-118-2738925-00

PATIENT
  Sex: Female

DRUGS (1)
  1. HUMIRA [Suspect]
     Active Substance: ADALIMUMAB
     Indication: ANKYLOSING SPONDYLITIS
     Route: 058
     Dates: start: 20181227

REACTIONS (6)
  - Musculoskeletal disorder [Unknown]
  - Urinary incontinence [Recovering/Resolving]
  - Nasopharyngitis [Recovering/Resolving]
  - Intervertebral disc protrusion [Recovering/Resolving]
  - Gait disturbance [Recovering/Resolving]
  - Productive cough [Unknown]

NARRATIVE: CASE EVENT DATE: 2019
